FAERS Safety Report 4511433-7 (Version None)
Quarter: 2004Q4

REPORT INFORMATION
  Report Type: 
  Country: None (occurrence: None)
  Receive Date: 20041129
  Receipt Date: 20040810
  Transmission Date: 20050328
  Serious: No
  Sender: FDA-Public Use
  Company Number: US-BRISTOL-MYERS SQUIBB COMPANY-12666673

PATIENT
  Age: 22 Year
  Sex: Male
  Weight: 75 kg

DRUGS (5)
  1. ABILIFY [Suspect]
     Indication: DEPRESSION
     Dosage: 1/2 OF A 10 MG TABLET; DECREASED TO 2.5 MG/DAY
     Route: 048
  2. LEXAPRO [Concomitant]
  3. ALLEGRA [Concomitant]
  4. ALBUTEROL [Concomitant]
  5. PULMICORT [Concomitant]
     Dosage: 2 PUFFS

REACTIONS (3)
  - DYSKINESIA [None]
  - MUSCULOSKELETAL STIFFNESS [None]
  - PYREXIA [None]
